FAERS Safety Report 5053140-0 (Version None)
Quarter: 2006Q3

REPORT INFORMATION
  Report Type: 
  Country: None (occurrence: None)
  Receive Date: 20060712
  Receipt Date: 20060622
  Transmission Date: 20061208
  Serious: Yes (Other)
  Sender: FDA-Public Use
  Company Number: US200606005052

PATIENT
  Sex: Male

DRUGS (1)
  1. PROZAC [Suspect]
     Indication: DEPRESSION
     Dosage: 10 MG, 3/D, UNK

REACTIONS (3)
  - DIALYSIS [None]
  - LIVING IN RESIDENTIAL INSTITUTION [None]
  - RENAL FAILURE CHRONIC [None]
